FAERS Safety Report 17859263 (Version 3)
Quarter: 2021Q1

REPORT INFORMATION
  Report Type: Other
  Country: DE (occurrence: DE)
  Receive Date: 20200604
  Receipt Date: 20210125
  Transmission Date: 20210419
  Serious: Yes (Other)
  Sender: FDA-Public Use
  Company Number: DE-ROCHE-2481931

PATIENT
  Age: 75 Year
  Sex: Female

DRUGS (11)
  1. CORTISONE [Suspect]
     Active Substance: CORTISONE
     Indication: PRODUCT USED FOR UNKNOWN INDICATION
     Dosage: TAPPERING OFF
     Route: 065
  2. CORTISONE [Suspect]
     Active Substance: CORTISONE
     Route: 065
  3. ROACTEMRA [Suspect]
     Active Substance: TOCILIZUMAB
     Indication: GIANT CELL ARTERITIS
     Dosage: PEN
     Route: 058
     Dates: start: 20191009
  4. ROACTEMRA [Suspect]
     Active Substance: TOCILIZUMAB
     Route: 058
     Dates: start: 20200323, end: 20200420
  5. DEKRISTOL [Concomitant]
     Active Substance: CHOLECALCIFEROL
     Indication: PRODUCT USED FOR UNKNOWN INDICATION
  6. ROACTEMRA [Suspect]
     Active Substance: TOCILIZUMAB
     Route: 042
     Dates: start: 20200420, end: 20200604
  7. ROACTEMRA [Suspect]
     Active Substance: TOCILIZUMAB
     Route: 058
     Dates: start: 20200420, end: 20200604
  8. ROACTEMRA [Suspect]
     Active Substance: TOCILIZUMAB
     Route: 058
     Dates: start: 20200316
  9. PREDNISOLONE. [Concomitant]
     Active Substance: PREDNISOLONE
     Indication: PRODUCT USED FOR UNKNOWN INDICATION
     Dosage: TAPERING
     Route: 065
  10. ROACTEMRA [Suspect]
     Active Substance: TOCILIZUMAB
     Indication: GIANT CELL ARTERITIS
     Route: 042
     Dates: start: 20191008, end: 20191008
  11. CORTISONE [Suspect]
     Active Substance: CORTISONE
     Dosage: TAPPERING OFF
     Route: 065

REACTIONS (19)
  - Spinal pain [Recovered/Resolved]
  - Throat irritation [Unknown]
  - Tracheal disorder [Recovered/Resolved]
  - Nasopharyngitis [Recovered/Resolved]
  - Contusion [Recovered/Resolved]
  - Cystitis [Unknown]
  - Off label use [Unknown]
  - Pyrexia [Unknown]
  - Cough [Recovered/Resolved]
  - Urinary tract infection [Not Recovered/Not Resolved]
  - Urinary tract infection [Recovered/Resolved]
  - Laboratory test abnormal [Not Recovered/Not Resolved]
  - Cystitis [Recovering/Resolving]
  - Headache [Recovered/Resolved]
  - Ill-defined disorder [Recovered/Resolved]
  - Intentional product use issue [Unknown]
  - Arthralgia [Recovered/Resolved]
  - Dyspnoea [Recovered/Resolved]
  - Injection site erythema [Not Recovered/Not Resolved]

NARRATIVE: CASE EVENT DATE: 20191028
